FAERS Safety Report 26191922 (Version 1)
Quarter: 2025Q4

REPORT INFORMATION
  Report Type: Report from Study
  Country: US (occurrence: US)
  Receive Date: 20251223
  Receipt Date: 20251223
  Transmission Date: 20260117
  Serious: Yes (Hospitalization)
  Sender: OTSUKA
  Company Number: US-MMM-Otsuka-7G6LKTOB

PATIENT
  Sex: Male

DRUGS (2)
  1. TOLVAPTAN [Suspect]
     Active Substance: TOLVAPTAN
     Indication: Congenital cystic kidney disease
     Dosage: UNK
     Route: 065
  2. TOLVAPTAN [Suspect]
     Active Substance: TOLVAPTAN
     Dosage: 15 MG
     Route: 065

REACTIONS (2)
  - Adverse event [Unknown]
  - Underdose [Unknown]

NARRATIVE: CASE EVENT DATE: 20250101
